FAERS Safety Report 7202690-7 (Version None)
Quarter: 2010Q4

REPORT INFORMATION
  Report Type: 
  Country: None (occurrence: None)
  Receive Date: 20101229
  Receipt Date: 20101216
  Transmission Date: 20110411
  Serious: Yes (Other)
  Sender: FDA-Public Use
  Company Number: US-ACTELION-A-US2010-41402

PATIENT

DRUGS (1)
  1. ILOPROST INHALATION SOLUTION UNKNOWN US [Suspect]
     Indication: PULMONARY ARTERIAL HYPERTENSION
     Dosage: UNK ?G, UNK
     Route: 055
     Dates: start: 20101027

REACTIONS (5)
  - ERYTHEMA [None]
  - FEELING ABNORMAL [None]
  - NEURALGIA [None]
  - OEDEMA PERIPHERAL [None]
  - PAIN OF SKIN [None]
